FAERS Safety Report 6643866-7 (Version None)
Quarter: 2010Q1

REPORT INFORMATION
  Report Type: 
  Country: None (occurrence: None)
  Receive Date: 20100317
  Receipt Date: 20100310
  Transmission Date: 20100710
  Serious: Yes (Death, Life-Threatening)
  Sender: FDA-Public Use
  Company Number: 2010EU000884

PATIENT
  Sex: Male

DRUGS (3)
  1. MYCAMINE [Suspect]
     Indication: ANTIFUNGAL PROPHYLAXIS
     Dosage: 100 MG, UID/QD, IV NOS
     Route: 042
  2. CYCLOSPORINE [Concomitant]
  3. CORTICOSTEROID NOS (CORTICOSTEROID NOS) [Concomitant]

REACTIONS (3)
  - DRUG INEFFECTIVE [None]
  - FUNGAL SEPSIS [None]
  - LOWER RESPIRATORY TRACT INFECTION BACTERIAL [None]
